FAERS Safety Report 5567989-9 (Version None)
Quarter: 2007Q4

REPORT INFORMATION
  Report Type: 
  Country: None (occurrence: None)
  Receive Date: 20071220
  Receipt Date: 20071217
  Transmission Date: 20080405
  Serious: Yes (Other)
  Sender: FDA-Public Use
  Company Number: US-JNJFOC-20071204360

PATIENT
  Sex: Female
  Weight: 56.7 kg

DRUGS (2)
  1. LEVAQUIN [Suspect]
     Indication: KIDNEY INFECTION
     Route: 065
  2. SUPPLEMENTS [Concomitant]
     Route: 065

REACTIONS (2)
  - COELIAC DISEASE [None]
  - PHARMACEUTICAL PRODUCT COUNTERFEIT [None]
